FAERS Safety Report 24887523 (Version 1)
Quarter: 2025Q1

REPORT INFORMATION
  Report Type: Report from Study
  Country: US (occurrence: US)
  Receive Date: 20250127
  Receipt Date: 20250127
  Transmission Date: 20250409
  Serious: Yes (Other)
  Sender: ABBVIE
  Company Number: US-ABBVIE-6095675

PATIENT
  Age: 61 Year
  Sex: Female

DRUGS (3)
  1. CREON [Suspect]
     Active Substance: PANCRELIPASE AMYLASE\PANCRELIPASE LIPASE\PANCRELIPASE PROTEASE
     Indication: Product used for unknown indication
     Route: 048
     Dates: start: 20230101
  2. BUTRANS [Suspect]
     Active Substance: BUPRENORPHINE
     Indication: Back pain
     Route: 061
     Dates: start: 202412
  3. BUTRANS [Suspect]
     Active Substance: BUPRENORPHINE
     Indication: Back pain
     Route: 061

REACTIONS (9)
  - Knee operation [Unknown]
  - Fibromyalgia [Unknown]
  - Feeling cold [Unknown]
  - Back pain [Not Recovered/Not Resolved]
  - Body temperature decreased [Unknown]
  - Joint stiffness [Unknown]
  - Arthralgia [Unknown]
  - Arthritis [Unknown]
  - Application site pain [Recovering/Resolving]

NARRATIVE: CASE EVENT DATE: 20230101
